FAERS Safety Report 4630287-1 (Version None)
Quarter: 2005Q2

REPORT INFORMATION
  Report Type: 
  Country: None (occurrence: None)
  Receive Date: 20050405
  Receipt Date: 20050405
  Transmission Date: 20051028
  Serious: Yes (Hospitalization)
  Sender: FDA-Public Use
  Company Number: None

PATIENT
  Age: 64 Year
  Sex: Male
  Weight: 68.4932 kg

DRUGS (6)
  1. GEMCITABINE [Suspect]
     Indication: PANCREATIC CARCINOMA
     Dosage: 1820MG    D1,8,15  INTRAVENOUS
     Route: 042
     Dates: start: 20050222, end: 20050307
  2. GW572016 [Suspect]
     Indication: PANCREATIC CARCINOMA
     Dosage: 1000MG  D1-28    ORAL
     Route: 048
     Dates: start: 20050222, end: 20050321
  3. ACCUPRIL [Concomitant]
  4. ASPIRIN [Concomitant]
  5. ETODOLAC [Concomitant]
  6. LANTUS [Concomitant]

REACTIONS (5)
  - BLINDNESS TRANSIENT [None]
  - CAROTID BRUIT [None]
  - CEREBROVASCULAR ACCIDENT [None]
  - SCOTOMA [None]
  - TRANSIENT ISCHAEMIC ATTACK [None]
